FAERS Safety Report 10590927 (Version 1)
Quarter: 2014Q4

REPORT INFORMATION
  Report Type: Spontaneous
  Country: US (occurrence: US)
  Receive Date: 20141118
  Receipt Date: 20141118
  Transmission Date: 20150529
  Serious: Yes (Death)
  Sender: FDA-Public Use
  Company Number: US-BAYER-2014-168795

PATIENT
  Age: 93 Year
  Sex: Female

DRUGS (1)
  1. BAYER CHEWABLE LOW DOSE ASPIRIN ORANGE FLAVORED [Suspect]
     Active Substance: ASPIRIN
     Dosage: 1 TABLET, ONCE DAILY
     Route: 048
     Dates: start: 201407, end: 201408

REACTIONS (2)
  - Off label use [None]
  - Vein disorder [Fatal]

NARRATIVE: CASE EVENT DATE: 201407
